FAERS Safety Report 10016480 (Version 1)
Quarter: 2014Q1

REPORT INFORMATION
  Report Type: Report from Study
  Country: US (occurrence: US)
  Receive Date: 20140317
  Receipt Date: 20140317
  Transmission Date: 20141002
  Serious: Yes (Hospitalization)
  Sender: FDA-Public Use
  Company Number: US-US-EMD SERONO, INC.-7275626

PATIENT
  Age: 57 Year
  Sex: Female
  Weight: 70 kg

DRUGS (1)
  1. REBIF [Suspect]
     Indication: MULTIPLE SCLEROSIS
     Route: 058
     Dates: start: 20120312, end: 20131201

REACTIONS (4)
  - Multiple sclerosis relapse [Unknown]
  - Pyrexia [Unknown]
  - Infected dermal cyst [Recovered/Resolved]
  - Drug ineffective [Unknown]
